FAERS Safety Report 22653167 (Version 1)
Quarter: 2023Q2

REPORT INFORMATION
  Report Type: Report from Study
  Country: IT (occurrence: IT)
  Receive Date: 20230629
  Receipt Date: 20230629
  Transmission Date: 20230722
  Serious: Yes (Other)
  Sender: FDA-Public Use
  Company Number: None

PATIENT
  Age: 47 Year
  Sex: Female

DRUGS (2)
  1. IBUPROFEN [Suspect]
     Active Substance: IBUPROFEN
     Indication: Tonsillitis
     Route: 065
     Dates: start: 20230505, end: 20230505
  2. IBUPROFEN [Suspect]
     Active Substance: IBUPROFEN
     Indication: Pyrexia

REACTIONS (2)
  - Lip oedema [Recovering/Resolving]
  - Hypersensitivity [Recovering/Resolving]

NARRATIVE: CASE EVENT DATE: 20230505
